FAERS Safety Report 9225435 (Version 1)
Quarter: 2013Q2

REPORT INFORMATION
  Report Type: Spontaneous
  Country: JP (occurrence: JP)
  Receive Date: 20130411
  Receipt Date: 20130411
  Transmission Date: 20140414
  Serious: Yes (Death)
  Sender: FDA-Public Use
  Company Number: JP-ROCHE-1211502

PATIENT
  Age: 46 Year
  Sex: Female

DRUGS (10)
  1. AVASTIN [Suspect]
     Indication: GLIOBLASTOMA MULTIFORME
     Dosage: DOSAGE IS UNCERTAIN. ?IT IS THREE TIMES EVERY TWO WEEKS.
     Route: 041
     Dates: start: 200906
  2. AVASTIN [Suspect]
     Indication: OFF LABEL USE
     Dosage: DOSAGE IS UNCERTAIN. ?IT IS THREE TIMES EVERY TWO WEEKS.
     Route: 041
     Dates: start: 200910
  3. AVASTIN [Suspect]
     Dosage: DOSAGE IS UNCERTAIN.
     Route: 041
     Dates: start: 201002
  4. IRINOTECAN HYDROCHLORIDE [Concomitant]
     Indication: GLIOBLASTOMA MULTIFORME
     Dosage: DOSAGE IS UNCERTAIN. ?IT IS THREE TIMES EVERY TWO WEEKS.
     Route: 041
     Dates: start: 200906
  5. IRINOTECAN HYDROCHLORIDE [Concomitant]
     Dosage: DOSAGE IS UNCERTAIN. ?IT IS THREE TIMES EVERY TWO WEEKS.
     Route: 041
     Dates: start: 200910
  6. IRINOTECAN HYDROCHLORIDE [Concomitant]
     Dosage: DOSAGE IS UNCERTAIN.
     Route: 041
     Dates: start: 201002
  7. TEMOZOLOMIDE [Concomitant]
     Indication: GLIOBLASTOMA MULTIFORME
     Route: 065
     Dates: start: 200912
  8. INTERFERON BETA [Concomitant]
     Indication: GLIOBLASTOMA MULTIFORME
     Dosage: DOSAGE IS UNCERTAIN.
     Route: 065
  9. CARBOPLATIN [Concomitant]
     Indication: GLIOBLASTOMA MULTIFORME
     Dosage: DOSAGE IS UNCERTAIN.
     Route: 041
     Dates: start: 201003
  10. ETOPOSIDE [Concomitant]
     Indication: GLIOBLASTOMA MULTIFORME
     Dosage: DOSAGE IS UNCERTAIN.
     Route: 065
     Dates: start: 201003

REACTIONS (1)
  - Disease progression [Fatal]
